FAERS Safety Report 5690374-6 (Version None)
Quarter: 2008Q2

REPORT INFORMATION
  Report Type: 
  Country: None (occurrence: None)
  Receive Date: 20080401
  Receipt Date: 20080317
  Transmission Date: 20081010
  Serious: Yes (Other)
  Sender: FDA-Public Use
  Company Number: US-BAYER-200713756BCC

PATIENT
  Age: 49 Year
  Sex: Male
  Weight: 79 kg

DRUGS (4)
  1. ALEVE [Suspect]
     Indication: ARTHRITIS
     Dosage: UNIT DOSE: 220 MG
     Route: 048
     Dates: start: 20071108, end: 20071112
  2. TRICOR [Concomitant]
  3. ZOCOR [Concomitant]
  4. LOTREL [Concomitant]

REACTIONS (1)
  - HAEMORRHAGE URINARY TRACT [None]
